FAERS Safety Report 18218750 (Version 1)
Quarter: 2020Q3

REPORT INFORMATION
  Report Type: Spontaneous
  Country: IL (occurrence: IL)
  Receive Date: 20200901
  Receipt Date: 20200901
  Transmission Date: 20201103
  Serious: Yes (Other)
  Sender: FDA-Public Use
  Company Number: IL-ARBOR PHARMACEUTICALS, LLC-IL-2020ARB000701

PATIENT
  Age: 13 Year
  Sex: Male

DRUGS (3)
  1. TRIPTODUR [Suspect]
     Active Substance: TRIPTORELIN
  2. TRIPTODUR [Suspect]
     Active Substance: TRIPTORELIN
     Indication: PRODUCT USED FOR UNKNOWN INDICATION
     Dosage: UNK
     Route: 065
  3. TRIPTODUR [Suspect]
     Active Substance: TRIPTORELIN

REACTIONS (1)
  - Appendicitis [Unknown]
